FAERS Safety Report 7998063-X (Version None)
Quarter: 2011Q4

REPORT INFORMATION
  Report Type: 
  Country: None (occurrence: None)
  Receive Date: 20111221
  Receipt Date: 20101228
  Transmission Date: 20120403
  Serious: No
  Sender: FDA-Public Use
  Company Number: US-GLAXOSMITHKLINE-A0901705A

PATIENT
  Age: 46 Year
  Sex: Female

DRUGS (9)
  1. FORADIL [Concomitant]
  2. LOVAZA [Suspect]
     Indication: LOW DENSITY LIPOPROTEIN INCREASED
     Dosage: 2G PER DAY
     Route: 048
     Dates: start: 20100401
  3. PAXIL [Concomitant]
  4. ESTRADIOL [Concomitant]
  5. PULMICORT [Concomitant]
  6. ALLEGRA-D 12 HOUR [Concomitant]
  7. SINGULAIR [Concomitant]
  8. SPIRONOLACTONE [Concomitant]
  9. METFORMIN HCL [Concomitant]

REACTIONS (1)
  - THERAPEUTIC RESPONSE UNEXPECTED [None]
